FAERS Safety Report 11462458 (Version 1)
Quarter: 2015Q3

REPORT INFORMATION
  Report Type: Spontaneous
  Country: US (occurrence: US)
  Receive Date: 20150831
  Receipt Date: 20150831
  Transmission Date: 20151125
  Serious: No
  Sender: FDA-Public Use
  Company Number: US-ELI_LILLY_AND_COMPANY-US201010000764

PATIENT
  Age: 64 Year
  Sex: Female
  Weight: 56.69 kg

DRUGS (2)
  1. CYMBALTA [Suspect]
     Active Substance: DULOXETINE HYDROCHLORIDE
     Indication: FIBROMYALGIA
     Dosage: 30 MG, DAILY (1/D)
     Dates: start: 20100913
  2. CYMBALTA [Suspect]
     Active Substance: DULOXETINE HYDROCHLORIDE
     Dosage: 60 MG, DAILY (1/D)
     Dates: end: 20100924

REACTIONS (19)
  - Palpitations [Unknown]
  - Headache [Unknown]
  - Disturbance in attention [Unknown]
  - Confusional state [Unknown]
  - Pain in extremity [Unknown]
  - Thinking abnormal [Recovered/Resolved]
  - Nasal odour [Unknown]
  - Insomnia [Unknown]
  - Fatigue [Unknown]
  - Dizziness [Unknown]
  - Peripheral swelling [Recovered/Resolved]
  - Vomiting [Unknown]
  - Feeling abnormal [Unknown]
  - Memory impairment [Unknown]
  - Muscle spasms [Unknown]
  - Gait disturbance [Recovered/Resolved]
  - Pneumonia [Unknown]
  - Nausea [Unknown]
  - Dyspepsia [Unknown]

NARRATIVE: CASE EVENT DATE: 20100927
